FAERS Safety Report 7892192-7 (Version None)
Quarter: 2011Q4

REPORT INFORMATION
  Report Type: 
  Country: None (occurrence: None)
  Receive Date: 20111104
  Receipt Date: 20111025
  Transmission Date: 20120403
  Serious: Yes (Hospitalization)
  Sender: FDA-Public Use
  Company Number: BR-ASTRAZENECA-2011SE64921

PATIENT
  Age: 47 Year
  Sex: Male
  Weight: 90 kg

DRUGS (4)
  1. EXFORGE [Suspect]
     Indication: HYPERTENSION
     Dosage: 360/5 MG, BID (TWO TIMES A DAY)
     Route: 048
  2. DIOVAN [Suspect]
     Indication: HYPERTENSION
     Route: 048
  3. GLYBURIDE [Concomitant]
  4. ATACAND [Suspect]
     Indication: HYPERTENSION
     Route: 048

REACTIONS (4)
  - RETINAL DETACHMENT [None]
  - BLOOD PRESSURE INADEQUATELY CONTROLLED [None]
  - DRUG INEFFECTIVE [None]
  - INCORRECT DOSE ADMINISTERED [None]
